FAERS Safety Report 4531903-5 (Version None)
Quarter: 2004Q4

REPORT INFORMATION
  Report Type: 
  Country: None (occurrence: None)
  Receive Date: 20041216
  Receipt Date: 20041204
  Transmission Date: 20050328
  Serious: Yes (Hospitalization, Other)
  Sender: FDA-Public Use
  Company Number: HQWYE764006DEC04

PATIENT
  Age: 61 Year
  Sex: Male
  Weight: 81.6 kg

DRUGS (3)
  1. RAPAMUNE [Suspect]
     Indication: PROPHYLAXIS AGAINST TRANSPLANT REJECTION
     Dosage: 2 MG 1X PER 1 DAY, ORAL
     Route: 048
     Dates: start: 20040920
  2. CELLCEPT [Suspect]
     Indication: IMMUNOSUPPRESSANT DRUG THERAPY
     Dosage: SEE IMAGE
     Dates: end: 20041122
  3. CELLCEPT [Suspect]
     Indication: IMMUNOSUPPRESSANT DRUG THERAPY
     Dosage: SEE IMAGE
     Dates: start: 20041123

REACTIONS (4)
  - DEHYDRATION [None]
  - DIARRHOEA [None]
  - INFECTION [None]
  - PYREXIA [None]
